FAERS Safety Report 21260407 (Version 1)
Quarter: 2022Q3

REPORT INFORMATION
  Report Type: Spontaneous
  Country: US (occurrence: US)
  Receive Date: 20220826
  Receipt Date: 20220826
  Transmission Date: 20221027
  Serious: No
  Sender: FDA-Public Use
  Company Number: US-MYLANLABS-2022M1050268

PATIENT
  Sex: Female

DRUGS (1)
  1. ESTRADIOL [Suspect]
     Active Substance: ESTRADIOL
     Indication: Pollakiuria
     Dosage: 0.01 PERCENT, BIWEEKLY (TWICE A WEEK FOR ONE MONTH)
     Route: 067

REACTIONS (3)
  - Off label use [Unknown]
  - Device issue [Unknown]
  - Wrong technique in product usage process [Unknown]
